FAERS Safety Report 26055761 (Version 1)
Quarter: 2025Q4

REPORT INFORMATION
  Report Type: Other
  Country: AL (occurrence: AL)
  Receive Date: 20251117
  Receipt Date: 20251117
  Transmission Date: 20260117
  Serious: Yes (Hospitalization, Other)
  Sender: NOVITIUM PHARMA
  Company Number: AL-NOVITIUM PHARMA-000268

PATIENT
  Age: 73 Year
  Sex: Female

DRUGS (1)
  1. DIGOXIN [Suspect]
     Active Substance: DIGOXIN
     Indication: Atrial fibrillation

REACTIONS (5)
  - Hypokalaemia [Unknown]
  - Phantosmia [Recovered/Resolved]
  - Photopsia [Recovered/Resolved]
  - Bradycardia [Unknown]
  - Toxicity to various agents [Unknown]
